FAERS Safety Report 7660172-2 (Version None)
Quarter: 2011Q3

REPORT INFORMATION
  Report Type: 
  Country: None (occurrence: None)
  Receive Date: 20110805
  Receipt Date: 20110728
  Transmission Date: 20111222
  Serious: Yes (Other)
  Sender: FDA-Public Use
  Company Number: PHHY2011US68497

PATIENT
  Age: 62 Year
  Sex: Female

DRUGS (2)
  1. FEMARA [Suspect]
     Indication: BREAST CANCER METASTATIC
     Dosage: 2.5 MG, QD
     Route: 048
     Dates: end: 20110701
  2. ANTIHYPERTENSIVE DRUGS [Concomitant]

REACTIONS (1)
  - DEMYELINATING POLYNEUROPATHY [None]
